FAERS Safety Report 5756169-X (Version None)
Quarter: 2008Q2

REPORT INFORMATION
  Report Type: 
  Country: None (occurrence: None)
  Receive Date: 20080602
  Receipt Date: 20080521
  Transmission Date: 20081010
  Serious: Yes (Death, Hospitalization, Other)
  Sender: FDA-Public Use
  Company Number: US-PFIZER INC-2007068474

PATIENT
  Sex: Female
  Weight: 86.2 kg

DRUGS (1)
  1. BEXTRA [Suspect]
     Indication: PAIN
     Route: 048
     Dates: start: 20040601, end: 20041101

REACTIONS (5)
  - DYSPNOEA [None]
  - MYOCARDIAL INFARCTION [None]
  - NERVOUSNESS [None]
  - RASH [None]
  - THROMBOSIS [None]
